FAERS Safety Report 14153680 (Version 2)
Quarter: 2018Q4

REPORT INFORMATION
  Report Type: Report from Study
  Country: US (occurrence: US)
  Receive Date: 20171102
  Receipt Date: 20181005
  Transmission Date: 20190204
  Serious: Yes (Other)
  Sender: FDA-Public Use
  Company Number: US-SA-2017SA184458

PATIENT
  Age: 62 Year
  Sex: Female

DRUGS (2)
  1. ALIROCUMAB [Suspect]
     Active Substance: ALIROCUMAB
     Indication: BLOOD CHOLESTEROL INCREASED
     Dosage: 75 MG,QOW
     Route: 058
     Dates: start: 2015
  2. ALIROCUMAB [Suspect]
     Active Substance: ALIROCUMAB
     Dosage: UNK UNK,QOW
     Route: 058
     Dates: start: 20170606

REACTIONS (5)
  - Meniscus injury [Unknown]
  - Device issue [Unknown]
  - Arthralgia [Unknown]
  - Product dose omission [Unknown]
  - Pain in extremity [Unknown]

NARRATIVE: CASE EVENT DATE: 2017
